FAERS Safety Report 22014859 (Version 1)
Quarter: 2023Q1

REPORT INFORMATION
  Report Type: Other
  Country: US (occurrence: US)
  Receive Date: 20230221
  Receipt Date: 20230221
  Transmission Date: 20230418
  Serious: Yes (Other)
  Sender: FDA-Public Use
  Company Number: None

PATIENT
  Age: 56 Year
  Sex: Male

DRUGS (3)
  1. OMEPRAZOLE [Suspect]
     Active Substance: OMEPRAZOLE
     Indication: Helicobacter infection
     Dosage: NA
     Route: 048
  2. AMOXICILLIN [Suspect]
     Active Substance: AMOXICILLIN
     Indication: Helicobacter infection
     Dosage: NA
     Route: 048
  3. RIFABUTIN [Suspect]
     Active Substance: RIFABUTIN
     Indication: Helicobacter infection
     Dosage: NA
     Route: 048

REACTIONS (2)
  - Anaphylactic reaction [Recovering/Resolving]
  - Off label use [Unknown]
